FAERS Safety Report 16729214 (Version 3)
Quarter: 2020Q2

REPORT INFORMATION
  Report Type: Spontaneous
  Country: US (occurrence: US)
  Receive Date: 20190822
  Receipt Date: 20200413
  Transmission Date: 20200713
  Serious: Yes (Other)
  Sender: FDA-Public Use
  Company Number: US-PFIZER INC-2019359010

PATIENT
  Age: 62 Year
  Sex: Female
  Weight: 109.7 kg

DRUGS (1)
  1. LYRICA [Suspect]
     Active Substance: PREGABALIN
     Indication: FIBROMYALGIA
     Dosage: 200 MG, 3X/DAY
     Route: 048
     Dates: start: 2018

REACTIONS (7)
  - Pain in extremity [Unknown]
  - Off label use [Unknown]
  - Foot fracture [Not Recovered/Not Resolved]
  - Musculoskeletal chest pain [Unknown]
  - Product use issue [Unknown]
  - Gait disturbance [Unknown]
  - Fall [Unknown]

NARRATIVE: CASE EVENT DATE: 2018
